FAERS Safety Report 18322904 (Version 6)
Quarter: 2021Q1

REPORT INFORMATION
  Report Type: Spontaneous
  Country: CA (occurrence: CA)
  Receive Date: 20200929
  Receipt Date: 20210212
  Transmission Date: 20210419
  Serious: Yes (Other)
  Sender: FDA-Public Use
  Company Number: CA-CELLTRION INC.-2020CA019919

PATIENT

DRUGS (10)
  1. INFLECTRA [Suspect]
     Active Substance: INFLIXIMAB-DYYB
     Indication: COLITIS ULCERATIVE
     Dosage: 400MG EVERY 8 WEEKS
     Route: 042
     Dates: start: 20200703, end: 20200828
  2. INFLECTRA [Suspect]
     Active Substance: INFLIXIMAB-DYYB
     Dosage: 10MG/KG RELOAD THEN 10MG/KG EVERY 4 WEEKS
     Route: 042
     Dates: start: 20201013
  3. INFLECTRA [Suspect]
     Active Substance: INFLIXIMAB-DYYB
     Dosage: 400MG EVERY 8 WEEKS
     Route: 042
     Dates: start: 20200828
  4. INFLECTRA [Suspect]
     Active Substance: INFLIXIMAB-DYYB
     Dosage: 10MG/KG RELOAD THEN 10MG/KG EVERY 4 WEEKS
     Route: 042
     Dates: start: 20210201
  5. INFLECTRA [Suspect]
     Active Substance: INFLIXIMAB-DYYB
     Dosage: 10MG/KG RELOAD THEN 10MG/KG EVERY 4 WEEKS
     Route: 042
     Dates: start: 20201110
  6. INFLECTRA [Suspect]
     Active Substance: INFLIXIMAB-DYYB
     Dosage: 10MG/KG RELOAD THEN 10MG/KG EVERY 4 WEEKS
     Route: 042
     Dates: start: 20201013
  7. INFLECTRA [Suspect]
     Active Substance: INFLIXIMAB-DYYB
     Dosage: 10MG/KG RELOAD THEN 10MG/KG EVERY 4 WEEKS
     Route: 042
     Dates: start: 20210201
  8. INFLECTRA [Suspect]
     Active Substance: INFLIXIMAB-DYYB
     Dosage: 10MG/KG RELOAD THEN 10MG/KG EVERY 4 WEEKS
     Route: 042
     Dates: start: 20201001
  9. INFLECTRA [Suspect]
     Active Substance: INFLIXIMAB-DYYB
     Dosage: 10MG/KG RELOAD THEN 10MG/KG EVERY 4 WEEKS
     Route: 042
     Dates: start: 20201001
  10. INFLECTRA [Suspect]
     Active Substance: INFLIXIMAB-DYYB
     Dosage: 10MG/KG RELOAD THEN 10MG/KG EVERY 4 WEEKS
     Route: 042
     Dates: start: 20201013

REACTIONS (21)
  - Back pain [Unknown]
  - Weight decreased [Unknown]
  - Off label use [Unknown]
  - Blood pressure diastolic increased [Unknown]
  - Intentional product use issue [Unknown]
  - Illness [Unknown]
  - Off label use [Unknown]
  - Fatigue [Unknown]
  - Abdominal pain [Unknown]
  - Emotional disorder [Unknown]
  - Condition aggravated [Unknown]
  - Flank pain [Unknown]
  - Asthenia [Unknown]
  - Depressed mood [Unknown]
  - Blood pressure increased [Unknown]
  - Dizziness [Recovered/Resolved]
  - Feeling abnormal [Unknown]
  - Disturbance in attention [Unknown]
  - Decreased appetite [Unknown]
  - Pain [Unknown]
  - Nausea [Unknown]

NARRATIVE: CASE EVENT DATE: 2020
